FAERS Safety Report 9571381 (Version 3)
Quarter: 2013Q4

REPORT INFORMATION
  Report Type: Spontaneous
  Country: JP (occurrence: JP)
  Receive Date: 20131001
  Receipt Date: 20131031
  Transmission Date: 20140711
  Serious: Yes (Other)
  Sender: FDA-Public Use
  Company Number: JP-JNJFOC-20130917384

PATIENT
  Age: 83 Year
  Sex: Male

DRUGS (1)
  1. TRAMCET [Suspect]
     Indication: PAIN
     Route: 048
     Dates: start: 20130830

REACTIONS (1)
  - Interstitial lung disease [Unknown]
